FAERS Safety Report 8559408-5 (Version None)
Quarter: 2012Q3

REPORT INFORMATION
  Report Type: 
  Country: None (occurrence: None)
  Receive Date: 20120802
  Receipt Date: 20120727
  Transmission Date: 20120928
  Serious: Yes (Other)
  Sender: FDA-Public Use
  Company Number: US-BAYER-2012-003786

PATIENT
  Age: 60 Year
  Sex: Male
  Weight: 102.4 kg

DRUGS (5)
  1. NEXAVAR [Suspect]
     Dosage: 200 MG, BID TUE, THUR, SAT, SUN
  2. SPIRIVA [Concomitant]
     Indication: CHRONIC OBSTRUCTIVE PULMONARY DISEASE
     Dosage: UNK UNK, QD
  3. HYDROCHLOROTHIAZIDE [Concomitant]
     Indication: HYPERTENSION
  4. NEXAVAR [Suspect]
     Indication: HEPATIC NEOPLASM MALIGNANT
     Dosage: 400 MG, BID
     Route: 048
     Dates: start: 20111122
  5. LISINOPRIL [Concomitant]
     Indication: HYPERTENSION
     Dosage: UNK UNK, QD
     Dates: start: 20070101

REACTIONS (8)
  - FEELING ABNORMAL [None]
  - IMPAIRED WORK ABILITY [None]
  - UNEVALUABLE EVENT [None]
  - PAIN IN EXTREMITY [None]
  - MUSCLE SPASMS [None]
  - AGEUSIA [None]
  - GAIT DISTURBANCE [None]
  - POOR QUALITY SLEEP [None]
